FAERS Safety Report 8032132-3 (Version None)
Quarter: 2012Q1

REPORT INFORMATION
  Report Type: 
  Country: None (occurrence: None)
  Receive Date: 20120109
  Receipt Date: 20120103
  Transmission Date: 20120608
  Serious: Yes (Other)
  Sender: FDA-Public Use
  Company Number: US-MERCK-1201USA00405

PATIENT
  Sex: Female

DRUGS (2)
  1. ALENDRONATE SODIUM [Suspect]
     Route: 065
     Dates: end: 20100101
  2. FOSAMAX [Suspect]
     Route: 065
     Dates: end: 20100101

REACTIONS (2)
  - BONE DISORDER [None]
  - FEMUR FRACTURE [None]
